FAERS Safety Report 6526636-X (Version None)
Quarter: 2009Q4

REPORT INFORMATION
  Report Type: 
  Country: None (occurrence: None)
  Receive Date: 20091230
  Receipt Date: 20091228
  Transmission Date: 20100525
  Serious: Yes (Death)
  Sender: FDA-Public Use
  Company Number: ALL1-2009-04157

PATIENT
  Age: 56 Year
  Sex: Female
  Weight: 58 kg

DRUGS (1)
  1. FOSRENOL [Suspect]
     Indication: HYPERPHOSPHATAEMIA
     Dosage: MG,ORAL
     Route: 048
     Dates: start: 20090101, end: 20091101

REACTIONS (4)
  - CONDITION AGGRAVATED [None]
  - DECREASED APPETITE [None]
  - UNEVALUABLE EVENT [None]
  - VOMITING [None]
